FAERS Safety Report 7908895-1 (Version None)
Quarter: 2011Q4

REPORT INFORMATION
  Report Type: 
  Country: None (occurrence: None)
  Receive Date: 20111111
  Receipt Date: 20111102
  Transmission Date: 20120403
  Serious: Yes (Hospitalization, Other)
  Sender: FDA-Public Use
  Company Number: FR-BRISTOL-MYERS SQUIBB COMPANY-16212243

PATIENT
  Age: 64 Year
  Sex: Male

DRUGS (3)
  1. IRBESARTAN AND HYDROCHLOROTHIAZIDE [Suspect]
     Dosage: 1DF=300 MG/12.5MG
     Route: 048
  2. NEO-MERCAZOLE TAB [Suspect]
     Indication: HYPERTHYROIDISM
     Route: 048
     Dates: start: 20110824, end: 20110915
  3. PRAVASTATIN [Suspect]
     Route: 048

REACTIONS (2)
  - HYPERTHYROIDISM [None]
  - GLOMERULONEPHRITIS RAPIDLY PROGRESSIVE [None]
